FAERS Safety Report 22585929 (Version 1)
Quarter: 2023Q2

REPORT INFORMATION
  Report Type: Spontaneous
  Country: CN (occurrence: CN)
  Receive Date: 20230610
  Receipt Date: 20230610
  Transmission Date: 20230721
  Serious: Yes (Death, Other)
  Sender: FDA-Public Use
  Company Number: CN-TAKEDA-2023TUS056288

PATIENT
  Age: 19 Year
  Sex: Male

DRUGS (1)
  1. COLCHICINE [Suspect]
     Active Substance: COLCHICINE
     Indication: Depression
     Dosage: 0.5 MILLIGRAM
     Route: 048

REACTIONS (7)
  - Overdose [Fatal]
  - Multiple organ dysfunction syndrome [Fatal]
  - Cardiac arrest [Fatal]
  - Acute respiratory distress syndrome [Fatal]
  - Acute respiratory failure [Fatal]
  - Cardiac failure acute [Fatal]
  - Shock [Fatal]
